FAERS Safety Report 14269081 (Version 1)
Quarter: 2017Q4

REPORT INFORMATION
  Report Type: Other
  Country: GB (occurrence: GB)
  Receive Date: 20171211
  Receipt Date: 20171211
  Transmission Date: 20180321
  Serious: Yes (Other)
  Sender: FDA-Public Use
  Company Number: GB-HERITAGE PHARMACEUTICALS-2017HTG00366

PATIENT
  Age: 18 Year
  Sex: Female
  Weight: 58 kg

DRUGS (4)
  1. PROPANOLOL HYDROCHLORIDE [Concomitant]
     Active Substance: PROPRANOLOL HYDROCHLORIDE
  2. FLUOXETINE [Suspect]
     Active Substance: FLUOXETINE HYDROCHLORIDE
     Indication: DEPRESSION
     Dosage: UNK
     Route: 048
     Dates: start: 20140404
  3. PROMETHAZINE [Concomitant]
     Active Substance: PROMETHAZINE\PROMETHAZINE HYDROCHLORIDE
  4. DRIED FERROUS SULFATE [Concomitant]

REACTIONS (4)
  - Night sweats [Unknown]
  - Middle insomnia [Unknown]
  - Sleep disorder [Unknown]
  - Bruxism [Unknown]

NARRATIVE: CASE EVENT DATE: 20150411
